FAERS Safety Report 8416292-8 (Version None)
Quarter: 2012Q2

REPORT INFORMATION
  Report Type: 
  Country: None (occurrence: None)
  Receive Date: 20120606
  Receipt Date: 20120525
  Transmission Date: 20120825
  Serious: Yes (Hospitalization)
  Sender: FDA-Public Use
  Company Number: DE-ROCHE-1072290

PATIENT
  Sex: Female
  Weight: 58 kg

DRUGS (9)
  1. CARBOPLATIN [Suspect]
     Indication: NON-SMALL CELL LUNG CANCER
     Dosage: AUC 5
     Route: 042
     Dates: start: 20110809, end: 20111229
  2. ATACAND [Concomitant]
     Dates: start: 20010101
  3. AVASTIN [Suspect]
     Indication: NON-SMALL CELL LUNG CANCER
     Dosage: LAST DOSE:22/NOV/2011
     Route: 042
     Dates: start: 20110809, end: 20111229
  4. CONJUGATED ESTROGENS [Concomitant]
     Dates: start: 19810101
  5. PEMETREXED DISODIUM [Suspect]
     Indication: NON-SMALL CELL LUNG CANCER
     Dosage: LAST DOSE:22/NOV/2011
     Route: 042
     Dates: start: 20110809, end: 20111229
  6. ASPIRIN [Concomitant]
     Dates: start: 20111212
  7. SIMVASTATIN [Concomitant]
     Dates: start: 20080101
  8. PANTOPRAZOLE [Concomitant]
     Dates: start: 20111212
  9. METOPROLOL SUCCINATE [Concomitant]
     Dates: start: 20120118

REACTIONS (2)
  - CORONARY ARTERY DISEASE [None]
  - PYREXIA [None]
